FAERS Safety Report 6860175-1 (Version None)
Quarter: 2010Q3

REPORT INFORMATION
  Report Type: 
  Country: None (occurrence: None)
  Receive Date: 20100720
  Receipt Date: 20100716
  Transmission Date: 20110219
  Serious: Yes (Hospitalization)
  Sender: FDA-Public Use
  Company Number: PT-EISAI INC.-E2090-01243-SPO-PT

PATIENT
  Sex: Female
  Weight: 65 kg

DRUGS (7)
  1. ZONEGRAN [Suspect]
     Indication: PRODUCT USED FOR UNKNOWN INDICATION
     Route: 048
     Dates: start: 20100401
  2. ZONEGRAN [Suspect]
     Dosage: 150 MG
     Route: 048
     Dates: end: 20100602
  3. BACLOFEN [Concomitant]
     Dosage: 30 MG
     Route: 048
  4. PHENOBARBITAL [Concomitant]
     Route: 048
  5. PHENYTOIN [Concomitant]
     Dosage: 300 MG
     Route: 048
  6. PREGABALIN [Concomitant]
     Route: 048
     Dates: start: 20100606
  7. NITROFURANTOIN [Concomitant]
     Route: 048

REACTIONS (3)
  - AGITATION [None]
  - AMMONIA INCREASED [None]
  - HYPERHIDROSIS [None]
